FAERS Safety Report 23852826 (Version 1)
Quarter: 2024Q2

REPORT INFORMATION
  Report Type: Spontaneous
  Country: DE (occurrence: DE)
  Receive Date: 20240514
  Receipt Date: 20240514
  Transmission Date: 20240716
  Serious: Yes (Hospitalization)
  Sender: FDA-Public Use
  Company Number: None

PATIENT
  Age: 67 Year
  Sex: Female
  Weight: 60 kg

DRUGS (8)
  1. FLUOROURACIL [Suspect]
     Active Substance: FLUOROURACIL
     Indication: Product used for unknown indication
     Dosage: SCHEMA
  2. IRINOTECAN [Suspect]
     Active Substance: IRINOTECAN
     Indication: Product used for unknown indication
     Dosage: SCHEMA
  3. OXALIPLATIN [Suspect]
     Active Substance: OXALIPLATIN
     Indication: Product used for unknown indication
     Dosage: SCHEMA
  4. BEVACIZUMAB [Suspect]
     Active Substance: BEVACIZUMAB
     Indication: Product used for unknown indication
     Dosage: SCHEMA
  5. LEUCOVORIN [Suspect]
     Active Substance: LEUCOVORIN\LEUCOVORIN CALCIUM
     Indication: Product used for unknown indication
     Dosage: SCHEMA
  6. CHOLECALCIFEROL [Concomitant]
     Active Substance: CHOLECALCIFEROL
     Dosage: SCHEMA
  7. GRANISETRON [Concomitant]
     Active Substance: GRANISETRON
     Dosage: AS REQUIRED
  8. DEXAMETHASONE [Concomitant]
     Active Substance: DEXAMETHASONE
     Dosage: SCHEMA

REACTIONS (11)
  - Nausea [Unknown]
  - Tachypnoea [Unknown]
  - Abdominal pain [Unknown]
  - Condition aggravated [Unknown]
  - General physical health deterioration [Unknown]
  - Systemic infection [Unknown]
  - Tachycardia [Unknown]
  - Pain [Unknown]
  - Pyrexia [Unknown]
  - Vomiting [Unknown]
  - Weight decreased [Unknown]
